FAERS Safety Report 14838497 (Version 6)
Quarter: 2020Q2

REPORT INFORMATION
  Report Type: Report from Study
  Country: KR (occurrence: KR)
  Receive Date: 20180502
  Receipt Date: 20200507
  Transmission Date: 20200713
  Serious: Yes (Hospitalization)
  Sender: FDA-Public Use
  Company Number: KR-EISAI MEDICAL RESEARCH-EC-2018-039383

PATIENT
  Age: 62 Year
  Sex: Female
  Weight: 49.3 kg

DRUGS (35)
  1. LENVATINIB [Suspect]
     Active Substance: LENVATINIB
     Route: 048
     Dates: start: 20180822, end: 20181116
  2. LENVATINIB [Suspect]
     Active Substance: LENVATINIB
     Route: 048
     Dates: start: 20191121, end: 20191130
  3. LENVATINIB [Suspect]
     Active Substance: LENVATINIB
     Route: 048
     Dates: start: 20200106, end: 20200208
  4. AMLODIPINE [Concomitant]
     Active Substance: AMLODIPINE BESYLATE
  5. LOPMIN [Concomitant]
  6. LENVATINIB [Suspect]
     Active Substance: LENVATINIB
     Indication: PAPILLARY THYROID CANCER
     Route: 048
     Dates: start: 20170901, end: 20170921
  7. LENVATINIB [Suspect]
     Active Substance: LENVATINIB
     Route: 048
     Dates: start: 20181129, end: 20181219
  8. LENVATINIB [Suspect]
     Active Substance: LENVATINIB
     Route: 048
     Dates: start: 20190328, end: 20191115
  9. OPTIDERM [Concomitant]
  10. ANTIS GARGLE [Concomitant]
  11. LENVATINIB [Suspect]
     Active Substance: LENVATINIB
     Route: 048
     Dates: start: 20170929, end: 20171205
  12. SYNTHROID [Concomitant]
     Active Substance: LEVOTHYROXINE SODIUM
  13. ULTRACET [Concomitant]
     Active Substance: ACETAMINOPHEN\TRAMADOL HYDROCHLORIDE
  14. CALCIUM CARBONATE. [Concomitant]
     Active Substance: CALCIUM CARBONATE
  15. SMECTA [Concomitant]
     Active Substance: MONTMORILLONITE
  16. HEXAMEDIN [Concomitant]
  17. DICHLOZID [Concomitant]
  18. RAMEZOL [Concomitant]
  19. CLARIC [Concomitant]
  20. LENVATINIB [Suspect]
     Active Substance: LENVATINIB
     Route: 048
     Dates: start: 20171207, end: 20180427
  21. DETHASONE [Concomitant]
  22. MEGACE [Concomitant]
     Active Substance: MEGESTROL ACETATE
  23. SEVIKAR [Concomitant]
     Active Substance: AMLODIPINE BESYLATE\OLMESARTAN MEDOXOMIL
  24. AMOXICILLIN. [Concomitant]
     Active Substance: AMOXICILLIN
  25. LENVATINIB [Suspect]
     Active Substance: LENVATINIB
     Route: 048
     Dates: start: 20180608, end: 20180817
  26. LENVATINIB [Suspect]
     Active Substance: LENVATINIB
     Route: 048
     Dates: start: 20181222, end: 20190310
  27. LENVATINIB [Suspect]
     Active Substance: LENVATINIB
     Route: 048
     Dates: start: 20200213, end: 20200308
  28. FOSAMAX PLUS D [Concomitant]
     Active Substance: ALENDRONATE SODIUM\CHOLECALCIFEROL
  29. IR CODON [Concomitant]
     Active Substance: OXYCODONE HYDROCHLORIDE
  30. ROSUVAMIBE [Concomitant]
  31. ENCOVER [Concomitant]
  32. NEBIVOLOL. [Concomitant]
     Active Substance: NEBIVOLOL
  33. PHAZYME [Concomitant]
     Active Substance: DIMETHICONE 410
  34. LENVATINIB [Suspect]
     Active Substance: LENVATINIB
     Route: 048
     Dates: start: 20200312, end: 20200408
  35. OLMETEC PLUS [Concomitant]
     Active Substance: HYDROCHLOROTHIAZIDE\OLMESARTAN MEDOXOMIL

REACTIONS (4)
  - Cholecystitis [Recovered/Resolved]
  - Hepatitis toxic [Recovered/Resolved]
  - Pathological fracture [Recovered/Resolved]
  - Abscess limb [Recovered/Resolved]

NARRATIVE: CASE EVENT DATE: 20180428
